FAERS Safety Report 19887959 (Version 3)
Quarter: 2022Q1

REPORT INFORMATION
  Report Type: Spontaneous
  Country: GB (occurrence: GB)
  Receive Date: 20210927
  Receipt Date: 20220222
  Transmission Date: 20220424
  Serious: Yes (Hospitalization, Other)
  Sender: FDA-Public Use
  Company Number: GB-MYLANLABS-2021M1065410

PATIENT
  Sex: Male

DRUGS (1)
  1. CLOZARIL [Suspect]
     Active Substance: CLOZAPINE
     Indication: Schizophrenia
     Dosage: UNK
     Route: 048
     Dates: start: 20071223

REACTIONS (6)
  - Respiratory tract infection [Unknown]
  - Sedation [Unknown]
  - Subcutaneous abscess [Unknown]
  - C-reactive protein abnormal [Recovering/Resolving]
  - Product dose omission issue [Unknown]
  - Treatment noncompliance [Unknown]
